FAERS Safety Report 5528680-8 (Version None)
Quarter: 2007Q4

REPORT INFORMATION
  Report Type: 
  Country: None (occurrence: None)
  Receive Date: 20071129
  Receipt Date: 20071116
  Transmission Date: 20080405
  Serious: Yes (Hospitalization, Other)
  Sender: FDA-Public Use
  Company Number: PHBS2007BR19517

PATIENT
  Age: 65 Year
  Sex: Male
  Weight: 95 kg

DRUGS (2)
  1. GLEEVEC [Suspect]
     Indication: CHRONIC MYELOID LEUKAEMIA
     Dosage: 400 MG/DAY
     Route: 048
     Dates: start: 20010101
  2. GLEEVEC [Suspect]
     Dosage: 600 MG/DAY

REACTIONS (11)
  - BIPOLAR DISORDER [None]
  - BLOOD TEST ABNORMAL [None]
  - C-REACTIVE PROTEIN INCREASED [None]
  - CHROMOSOME ANALYSIS ABNORMAL [None]
  - GAIT DISTURBANCE [None]
  - HAEMOGLOBIN DECREASED [None]
  - INSOMNIA [None]
  - INTERVERTEBRAL DISC OPERATION [None]
  - INTERVERTEBRAL DISC PROTRUSION [None]
  - NOSOCOMIAL INFECTION [None]
  - PAIN IN EXTREMITY [None]
